FAERS Safety Report 6889149-1 (Version None)
Quarter: 2010Q3

REPORT INFORMATION
  Report Type: 
  Country: None (occurrence: None)
  Receive Date: 20100730
  Receipt Date: 20071221
  Transmission Date: 20110219
  Serious: No
  Sender: FDA-Public Use
  Company Number: US-PFIZER INC-2007108712

PATIENT
  Sex: Female
  Weight: 79.545 kg

DRUGS (4)
  1. LIPITOR [Suspect]
     Indication: BLOOD CHOLESTEROL
  2. PAMELOR [Concomitant]
  3. SYNTHROID [Concomitant]
  4. MIRALAX [Concomitant]

REACTIONS (1)
  - ALOPECIA [None]
